FAERS Safety Report 9378201 (Version 1)
Quarter: 2013Q3

REPORT INFORMATION
  Report Type: Spontaneous
  Country: SG (occurrence: SG)
  Receive Date: 20130701
  Receipt Date: 20130701
  Transmission Date: 20140515
  Serious: Yes (Other)
  Sender: FDA-Public Use
  Company Number: SG-GLAXOSMITHKLINE-B0904262A

PATIENT
  Age: 93 Year
  Sex: Female

DRUGS (1)
  1. CEFUROXIME AXETIL [Suspect]
     Indication: PRODUCT USED FOR UNKNOWN INDICATION
     Route: 048

REACTIONS (3)
  - Angioedema [Unknown]
  - Rash [Unknown]
  - Periorbital oedema [Unknown]
